FAERS Safety Report 22131495 (Version 1)
Quarter: 2023Q1

REPORT INFORMATION
  Report Type: Spontaneous
  Country: US (occurrence: US)
  Receive Date: 20230323
  Receipt Date: 20230323
  Transmission Date: 20230417
  Serious: No
  Sender: FDA-Public Use
  Company Number: US-ALLERGAN-2242857US

PATIENT
  Age: 58 Year
  Sex: Female
  Weight: 87.996 kg

DRUGS (1)
  1. LASTACAFT [Suspect]
     Active Substance: ALCAFTADINE
     Indication: Eye pruritus
     Dosage: 2 GTT, QD
     Route: 047
     Dates: start: 20221222, end: 20221226

REACTIONS (4)
  - Headache [Recovering/Resolving]
  - Swelling of eyelid [Recovering/Resolving]
  - Eye pain [Recovering/Resolving]
  - Eye discharge [Recovering/Resolving]

NARRATIVE: CASE EVENT DATE: 20221222
